FAERS Safety Report 6776541-9 (Version None)
Quarter: 2010Q2

REPORT INFORMATION
  Report Type: 
  Country: None (occurrence: None)
  Receive Date: 20100615
  Receipt Date: 20100602
  Transmission Date: 20101027
  Serious: Yes (Hospitalization)
  Sender: FDA-Public Use
  Company Number: 2010AP001170

PATIENT
  Age: 59 Year
  Sex: Male

DRUGS (14)
  1. PREDNISOLONE [Suspect]
     Indication: KIDNEY TRANSPLANT REJECTION
     Dosage: 10 MG;QD; 15 MG;PO;QD; 25 MG;QD
     Route: 048
     Dates: start: 20090827, end: 20090915
  2. PREDNISOLONE [Suspect]
     Indication: KIDNEY TRANSPLANT REJECTION
     Dosage: 10 MG;QD; 15 MG;PO;QD; 25 MG;QD
     Route: 048
     Dates: start: 20090916, end: 20090916
  3. PREDNISOLONE [Suspect]
     Indication: KIDNEY TRANSPLANT REJECTION
     Dosage: 10 MG;QD; 15 MG;PO;QD; 25 MG;QD
     Route: 048
     Dates: start: 20090827, end: 20090918
  4. PREDNISOLONE [Suspect]
     Indication: KIDNEY TRANSPLANT REJECTION
     Dosage: 10 MG;QD; 15 MG;PO;QD; 25 MG;QD
     Route: 048
     Dates: start: 20090917, end: 20090918
  5. PREDNISOLONE [Suspect]
     Indication: KIDNEY TRANSPLANT REJECTION
     Dosage: 10 MG;QD; 15 MG;PO;QD; 25 MG;QD
     Route: 048
     Dates: start: 20090919, end: 20091126
  6. MYCOPHENOLATE MOFETIL [Suspect]
     Indication: KIDNEY TRANSPLANT REJECTION
     Dosage: 750 MG;PO;BID;  500 MG; PO; BID
     Route: 048
     Dates: start: 20090116
  7. MYCOPHENOLATE MOFETIL [Suspect]
     Indication: KIDNEY TRANSPLANT REJECTION
     Dosage: 750 MG;PO;BID;  500 MG; PO; BID
     Route: 048
     Dates: start: 20090814
  8. CYCLOSPORINE [Suspect]
     Dosage: 75 MG; PO; BID;  150 MG; PO; BID
     Route: 048
     Dates: start: 20090520, end: 20091012
  9. CYCLOSPORINE [Suspect]
     Dosage: 75 MG; PO; BID;  150 MG; PO; BID
     Route: 048
     Dates: start: 20090116
  10. INSULIN ASPART (INSULIN ASPART) I [Concomitant]
  11. NSULIN GLARGINE (INSULIN GLARGINE) [Concomitant]
  12. ESOMEPRAZOLE MAGNESIUM [Concomitant]
  13. CYCLOSPORINE [Suspect]
     Indication: KIDNEY TRANSPLANT REJECTION
     Dosage: 75 MG;PO;BID, 150MG,PO BID
     Route: 048
     Dates: start: 20090520, end: 20091012
  14. CYCLOSPORINE [Suspect]
     Indication: KIDNEY TRANSPLANT REJECTION
     Dosage: 75 MG;PO;BID, 150MG,PO BID
     Route: 048
     Dates: start: 20090116

REACTIONS (3)
  - CHILLS [None]
  - INFECTION [None]
  - PYELONEPHRITIS [None]
